FAERS Safety Report 25538395 (Version 12)
Quarter: 2025Q4

REPORT INFORMATION
  Report Type: Report from Study
  Country: CA (occurrence: CA)
  Receive Date: 20250710
  Receipt Date: 20251227
  Transmission Date: 20260118
  Serious: Yes (Other)
  Sender: CELLTRION
  Company Number: CA-CELLTRION INC.-2025CA012511

PATIENT

DRUGS (16)
  1. INFLIXIMAB-DYYB [Suspect]
     Active Substance: INFLIXIMAB-DYYB
     Indication: Colitis ulcerative
     Dosage: 360MG (5 MG/KG) EVERY 6 WEEKS
     Route: 042
     Dates: start: 20250714
  2. INFLIXIMAB-DYYB [Suspect]
     Active Substance: INFLIXIMAB-DYYB
     Dosage: 10MG/KG, EVERY 4 WEEKS (CURRENT)
     Route: 042
     Dates: start: 20250714
  3. INFLIXIMAB-DYYB [Suspect]
     Active Substance: INFLIXIMAB-DYYB
     Dosage: 10MG/KG, EVERY 4 WEEKS (CURRENT)
     Route: 042
     Dates: start: 20250826
  4. INFLIXIMAB-DYYB [Suspect]
     Active Substance: INFLIXIMAB-DYYB
     Dosage: EVERY 4 WEEKS
     Route: 042
     Dates: start: 20250922
  5. INFLIXIMAB-DYYB [Suspect]
     Active Substance: INFLIXIMAB-DYYB
     Dosage: MAINTENANCE - 10MG/KG - IV (INTRAVENOUS) EVERY 4 WEEKS
     Route: 042
     Dates: start: 20250714
  6. INFLIXIMAB-DYYB [Suspect]
     Active Substance: INFLIXIMAB-DYYB
     Dosage: EVERY 4 WEEKS
     Route: 042
     Dates: start: 20251022
  7. INFLIXIMAB-DYYB [Suspect]
     Active Substance: INFLIXIMAB-DYYB
     Dosage: MAINTENANCE - 10MG/KG - IV (INTRAVENOUS) EVERY 4 WEEKS
     Route: 042
     Dates: start: 20251121
  8. INFLIXIMAB-DYYB [Suspect]
     Active Substance: INFLIXIMAB-DYYB
     Dosage: MAINTENANCE - 10MG/KG - IV (INTRAVENOUS) EVERY 4 WEEKS
     Route: 042
     Dates: start: 20251218
  9. INFLIXIMAB [Suspect]
     Active Substance: INFLIXIMAB
     Indication: Colitis ulcerative
     Dosage: 120MG Q2 WEEKS
     Route: 058
     Dates: start: 20250212, end: 2025
  10. INFLIXIMAB [Suspect]
     Active Substance: INFLIXIMAB
     Dosage: 120MG SC EVERY 2  WEEKS
     Route: 058
     Dates: start: 20250212, end: 2025
  11. INFLIXIMAB [Suspect]
     Active Substance: INFLIXIMAB
     Dosage: UNK
     Dates: start: 20250423
  12. INFLIXIMAB [Suspect]
     Active Substance: INFLIXIMAB
     Indication: Colitis ulcerative
     Dosage: UNK, SHE FELT MUCH BETTER WITH 3 IV DOSES
     Route: 042
     Dates: start: 202502
  13. INFLIXIMAB [Suspect]
     Active Substance: INFLIXIMAB
     Dosage: UNK, SHE FELT MUCH BETTER WITH 3 IV DOSES
     Route: 042
  14. INFLIXIMAB [Suspect]
     Active Substance: INFLIXIMAB
     Dosage: UNK, SHE FELT MUCH BETTER WITH 3 IV DOSES
     Route: 042
  15. INFLIXIMAB [Suspect]
     Active Substance: INFLIXIMAB
     Dosage: 5MG/KG Q6 WEEKS
  16. INFLECTRA [Suspect]
     Active Substance: INFLIXIMAB-DYYB
     Indication: Product used for unknown indication
     Dosage: FOR INDUCTION WEEKS 0, 2, 6
     Dates: start: 20250212

REACTIONS (22)
  - Faeces pale [Unknown]
  - Abdominal pain lower [Unknown]
  - Haematochezia [Unknown]
  - Faecal calprotectin increased [Unknown]
  - Stress [Unknown]
  - Condition aggravated [Unknown]
  - Proctalgia [Unknown]
  - Nasal dryness [Unknown]
  - Skin disorder [Unknown]
  - Anal incontinence [Unknown]
  - Weight decreased [Unknown]
  - Secretion discharge [Recovering/Resolving]
  - Unevaluable event [Recovering/Resolving]
  - Pain in extremity [Unknown]
  - Oedema peripheral [Unknown]
  - Diarrhoea [Unknown]
  - Pain [Unknown]
  - Off label use [Unknown]
  - Off label use [Unknown]
  - Therapeutic response decreased [Unknown]
  - Inappropriate schedule of product administration [Unknown]
  - Intentional product use issue [Unknown]

NARRATIVE: CASE EVENT DATE: 20250601
